FAERS Safety Report 8572438-2 (Version None)
Quarter: 2012Q3

REPORT INFORMATION
  Report Type: 
  Country: None (occurrence: None)
  Receive Date: 20120806
  Receipt Date: 20120502
  Transmission Date: 20120928
  Serious: No
  Sender: FDA-Public Use
  Company Number: US-009507513-2012SP034223

PATIENT

DRUGS (2)
  1. LOTRIMIN AF [Suspect]
     Indication: DERMATITIS DIAPER
     Dosage: UNK UNK, UNKNOWN
     Route: 061
  2. LOTRIMIN AF [Suspect]
     Indication: MEDICAL OBSERVATION

REACTIONS (2)
  - OFF LABEL USE [None]
  - DRUG ADMINISTERED TO PATIENT OF INAPPROPRIATE AGE [None]
